FAERS Safety Report 22122523 (Version 1)
Quarter: 2023Q1

REPORT INFORMATION
  Report Type: Spontaneous
  Country: IT (occurrence: IT)
  Receive Date: 20230321
  Receipt Date: 20230321
  Transmission Date: 20230418
  Serious: Yes (Other)
  Sender: FDA-Public Use
  Company Number: IT-Accord-302938

PATIENT
  Age: 49 Year
  Sex: Female

DRUGS (10)
  1. KEYTRUDA [Suspect]
     Active Substance: PEMBROLIZUMAB
     Dosage: 1ST CYCLE
     Dates: start: 20221011, end: 20221011
  2. KEYTRUDA [Suspect]
     Active Substance: PEMBROLIZUMAB
     Dosage: 2ND CYCLE
     Dates: start: 20221107, end: 20221107
  3. KEYTRUDA [Suspect]
     Active Substance: PEMBROLIZUMAB
     Dosage: 3RD CYCLE
     Dates: start: 20221206, end: 20221206
  4. KEYTRUDA [Suspect]
     Active Substance: PEMBROLIZUMAB
     Dosage: 4TH CYCLE
     Dates: start: 20230117, end: 20230117
  5. KEYTRUDA [Suspect]
     Active Substance: PEMBROLIZUMAB
     Dosage: 5TH CYCLE
     Dates: start: 20230214, end: 20230214
  6. CARBOPLATIN [Suspect]
     Active Substance: CARBOPLATIN
     Dosage: AUCS; Q3W
     Dates: start: 20221011, end: 20221206
  7. PACLITAXEL [Suspect]
     Active Substance: PACLITAXEL
     Dosage: QW; 80 MG/SQUARE METER
     Dates: start: 20221011
  8. PACLITAXEL [Suspect]
     Active Substance: PACLITAXEL
     Dosage: QW; 80 MG/SQUARE METER WITH REDUCTION OF 25%
     Dates: start: 20221108
  9. PACLITAXEL [Suspect]
     Active Substance: PACLITAXEL
     Dosage: QW; 80 MG/SQUARE METER WITH REDUCTION OF 30%
     Dates: start: 20221206
  10. PACLITAXEL [Suspect]
     Active Substance: PACLITAXEL
     Dosage: QW; 80 MG/SQUARE METER WITH REDUCTION OF 50%
     Dates: start: 20230117, end: 20230124

REACTIONS (4)
  - Neutropenia [Recovered/Resolved]
  - Alanine aminotransferase increased [Recovered/Resolved]
  - Aspartate aminotransferase increased [Recovered/Resolved]
  - Inappropriate schedule of product administration [Unknown]

NARRATIVE: CASE EVENT DATE: 20221025
